FAERS Safety Report 20701269 (Version 1)
Quarter: 2022Q2

REPORT INFORMATION
  Report Type: Spontaneous
  Country: US (occurrence: US)
  Receive Date: 20220412
  Receipt Date: 20220412
  Transmission Date: 20220720
  Serious: Yes (Death)
  Sender: FDA-Public Use
  Company Number: US-PFIZER INC-2020104940

PATIENT
  Age: 85 Year
  Sex: Female
  Weight: 56.7 kg

DRUGS (3)
  1. RAPAMUNE [Suspect]
     Active Substance: SIROLIMUS
     Indication: Myelodysplastic syndrome
     Dosage: 1 MG, 1X/DAY 1MG TAKE 1 TABLET (1 MG TOTAL) BY MOUTH
     Route: 048
  2. RAPAMUNE [Suspect]
     Active Substance: SIROLIMUS
     Indication: Aplasia pure red cell
     Dosage: 2 MG, DAILY, TAKE 2 TABLETS BY DAILY
     Route: 048
  3. JADENU [Concomitant]
     Active Substance: DEFERASIROX
     Indication: Blood iron increased
     Dosage: UNK

REACTIONS (2)
  - Death [Fatal]
  - Off label use [Unknown]

NARRATIVE: CASE EVENT DATE: 20220403
